FAERS Safety Report 5269857-9 (Version None)
Quarter: 2007Q1

REPORT INFORMATION
  Report Type: 
  Country: None (occurrence: None)
  Receive Date: 20070320
  Receipt Date: 20070311
  Transmission Date: 20070707
  Serious: Yes (Death, Hospitalization, Other)
  Sender: FDA-Public Use
  Company Number: EG-GLAXOSMITHKLINE-B0450941A

PATIENT
  Age: 58 Year
  Sex: Male

DRUGS (3)
  1. FORTUM [Suspect]
     Indication: GASTRO-JEJUNOSTOMY
     Dosage: 2G PER DAY
     Route: 042
     Dates: start: 20061126, end: 20061211
  2. ADRIAMYCIN PFS [Concomitant]
  3. UNKNOWN DRUG [Concomitant]

REACTIONS (9)
  - ABDOMINAL PAIN [None]
  - CARDIOGENIC SHOCK [None]
  - HEPATIC FAILURE [None]
  - JAUNDICE [None]
  - METASTASIS [None]
  - NAUSEA [None]
  - PHARMACEUTICAL PRODUCT COMPLAINT [None]
  - PYREXIA [None]
  - RESPIRATORY FAILURE [None]
